FAERS Safety Report 5632892-2 (Version None)
Quarter: 2008Q1

REPORT INFORMATION
  Report Type: 
  Country: None (occurrence: None)
  Receive Date: 20080221
  Receipt Date: 20080214
  Transmission Date: 20080703
  Serious: Yes (Death, Hospitalization)
  Sender: FDA-Public Use
  Company Number: CA-NOVOPROD-271822

PATIENT
  Age: 64 Year
  Sex: Male
  Weight: 72.562 kg

DRUGS (2)
  1. NOVOMIX 30 PENFILL 3 ML [Suspect]
     Indication: TYPE 2 DIABETES MELLITUS
     Dosage: 40 IU, QD
     Route: 058
     Dates: start: 20070517, end: 20070725
  2. CIPROFLOXACIN [Concomitant]

REACTIONS (3)
  - HEPATOMEGALY [None]
  - JAUNDICE CHOLESTATIC [None]
  - METASTATIC NEOPLASM [None]
